FAERS Safety Report 17516584 (Version 11)
Quarter: 2022Q2

REPORT INFORMATION
  Report Type: Spontaneous
  Country: US (occurrence: US)
  Receive Date: 20200309
  Receipt Date: 20220420
  Transmission Date: 20220721
  Serious: No
  Sender: FDA-Public Use
  Company Number: US-VERTEX PHARMACEUTICALS-2020-001871

PATIENT
  Age: 44 Year
  Sex: Female
  Weight: 61 kg

DRUGS (26)
  1. TRIKAFTA [Suspect]
     Active Substance: ELEXACAFTOR\IVACAFTOR\TEZACAFTOR
     Indication: Cystic fibrosis
     Dosage: 2 TABLETS AM; 1 TABLET PM
     Route: 048
     Dates: start: 20191112, end: 202102
  2. TRIKAFTA [Suspect]
     Active Substance: ELEXACAFTOR\IVACAFTOR\TEZACAFTOR
     Dosage: 1 ORANGE TAB AM; NEXT DAY 2 ORANGE TAB; REDUCED DOSE
     Route: 048
     Dates: start: 202102, end: 2021
  3. TRIKAFTA [Suspect]
     Active Substance: ELEXACAFTOR\IVACAFTOR\TEZACAFTOR
     Dosage: 1 ORANGE TAB AM; NEXT DAY 2 ORANGE TAB; INCORPORATING HALF BLUE TAB
     Route: 048
     Dates: start: 2021, end: 2021
  4. TRIKAFTA [Suspect]
     Active Substance: ELEXACAFTOR\IVACAFTOR\TEZACAFTOR
     Dosage: FULL DOSE
     Route: 048
     Dates: start: 2021, end: 2021
  5. TRIKAFTA [Suspect]
     Active Substance: ELEXACAFTOR\IVACAFTOR\TEZACAFTOR
     Dosage: 1 ORANGE TAB AM; 1 ORANGE TAB PM WITH NO BLUE TAB
     Route: 048
     Dates: start: 2021
  6. TRIKAFTA [Suspect]
     Active Substance: ELEXACAFTOR\IVACAFTOR\TEZACAFTOR
     Dosage: 1 ORANGE TAB IN AM AND HALF ORANGE TAB IN PM
     Route: 048
  7. VITAMIN K [Concomitant]
     Active Substance: PHYTONADIONE
  8. ULTRASE [PANCRELIPASE] [Concomitant]
  9. DUONEB [Concomitant]
     Active Substance: ALBUTEROL SULFATE\IPRATROPIUM BROMIDE
  10. ACETYLCYSTEINE [Concomitant]
     Active Substance: ACETYLCYSTEINE
     Dosage: 600 MG CAP
  11. L-LYSINE [LYSINE] [Concomitant]
  12. BACTRIM [Concomitant]
     Active Substance: SULFAMETHOXAZOLE\TRIMETHOPRIM
  13. VITAMIN C [Concomitant]
     Active Substance: ASCORBIC ACID
  14. PULMOZYME [Concomitant]
     Active Substance: DORNASE ALFA
  15. ZENPEP [Concomitant]
     Active Substance: PANCRELIPASE AMYLASE\PANCRELIPASE LIPASE\PANCRELIPASE PROTEASE
  16. SYMBICORT [Concomitant]
     Active Substance: BUDESONIDE\FORMOTEROL FUMARATE DIHYDRATE
  17. LUGOL [IODINE] [Concomitant]
     Dosage: 5%
  18. MAGNESIUM [Concomitant]
     Active Substance: MAGNESIUM
     Dosage: 100MG TAB
  19. VITAMIN K [Concomitant]
     Active Substance: PHYTONADIONE
     Dosage: 100MCG TAB
  20. CURCUMIN [Concomitant]
     Active Substance: CURCUMIN
     Dosage: 100 % POWDER
  21. CAYENNE PEPPER [Concomitant]
     Active Substance: CAPSICUM
     Dosage: 450MG
  22. ALLEGRA D-12 HOUR [Concomitant]
     Active Substance: FEXOFENADINE HYDROCHLORIDE\PSEUDOEPHEDRINE HYDROCHLORIDE
  23. VITAMIN D3 [Concomitant]
     Active Substance: CHOLECALCIFEROL
     Dosage: 1250 MCG
  24. ADVAIR HFA [Concomitant]
     Active Substance: FLUTICASONE PROPIONATE\SALMETEROL XINAFOATE
     Dosage: 230-21MCG HFA
  25. CROMOLYN SODIUM [Concomitant]
     Active Substance: CROMOLYN SODIUM
  26. LEVALBUTEROL HYDROCHLORIDE [Concomitant]
     Active Substance: LEVALBUTEROL HYDROCHLORIDE

REACTIONS (10)
  - Weight increased [Unknown]
  - Abdominal discomfort [Unknown]
  - Alopecia [Recovered/Resolved]
  - Heavy menstrual bleeding [Unknown]
  - Vomiting [Unknown]
  - Vision blurred [Not Recovered/Not Resolved]
  - Migraine [Recovered/Resolved]
  - Nausea [Unknown]
  - Fatigue [Not Recovered/Not Resolved]
  - Acne [Unknown]

NARRATIVE: CASE EVENT DATE: 20191101
